FAERS Safety Report 9461244 (Version 1)
Quarter: 2013Q3

REPORT INFORMATION
  Report Type: Spontaneous
  Country: US (occurrence: US)
  Receive Date: 20130816
  Receipt Date: 20130816
  Transmission Date: 20140515
  Serious: No
  Sender: FDA-Public Use
  Company Number: US-PFIZER INC-2013235457

PATIENT
  Age: 83 Year
  Sex: Male
  Weight: 64.4 kg

DRUGS (2)
  1. EPIPEN [Suspect]
     Indication: ALLERGY TO ARTHROPOD STING
     Dosage: 0.30 MG, UNK
     Route: 030
     Dates: start: 20130802, end: 20130802
  2. FISH OIL [Concomitant]
     Dosage: UNK

REACTIONS (2)
  - Flushing [Not Recovered/Not Resolved]
  - Pain [Not Recovered/Not Resolved]
